FAERS Safety Report 6717432-9 (Version None)
Quarter: 2010Q2

REPORT INFORMATION
  Report Type: 
  Country: None (occurrence: None)
  Receive Date: 20100503
  Receipt Date: 20100419
  Transmission Date: 20101027
  Serious: Yes (Hospitalization)
  Sender: FDA-Public Use
  Company Number: 232691J10USA

PATIENT
  Age: 48 Year
  Sex: Female

DRUGS (2)
  1. REBIF [Suspect]
     Indication: MULTIPLE SCLEROSIS
     Dosage: 44 MCG, 3 IN1 WK, SUBSUCTANEOUS
     Route: 058
     Dates: start: 20040603, end: 20100301
  2. ORAL CONTRACEPTIVES (ORAL CONTRACEPTIVE NOS) [Suspect]
     Dosage: ORAL
     Route: 048
     Dates: start: 20090101

REACTIONS (17)
  - ASTHENIA [None]
  - CONDITION AGGRAVATED [None]
  - CONSTIPATION [None]
  - DIPLOPIA [None]
  - FATIGUE [None]
  - FLUID RETENTION [None]
  - FUNGAL INFECTION [None]
  - GASTRIC PERFORATION [None]
  - GASTROINTESTINAL DISORDER [None]
  - HAEMATEMESIS [None]
  - HEADACHE [None]
  - INCORRECT DOSE ADMINISTERED [None]
  - MULTIPLE SCLEROSIS [None]
  - PULMONARY EMBOLISM [None]
  - SPEECH DISORDER [None]
  - THINKING ABNORMAL [None]
  - THROMBOSIS [None]
